FAERS Safety Report 7747828-8 (Version None)
Quarter: 2011Q3

REPORT INFORMATION
  Report Type: 
  Country: None (occurrence: None)
  Receive Date: 20110913
  Receipt Date: 20110906
  Transmission Date: 20111222
  Serious: Yes (Hospitalization)
  Sender: FDA-Public Use
  Company Number: US-JNJFOC-20110709201

PATIENT
  Sex: Male
  Weight: 94.35 kg

DRUGS (1)
  1. REMICADE [Suspect]
     Indication: RHEUMATOID ARTHRITIS
     Route: 042

REACTIONS (9)
  - HAEMATOMA [None]
  - CARDIAC FAILURE CONGESTIVE [None]
  - PORTAL VEIN THROMBOSIS [None]
  - FACTOR V DEFICIENCY [None]
  - ABNORMAL LOSS OF WEIGHT [None]
  - PULMONARY THROMBOSIS [None]
  - PNEUMONIA [None]
  - CARDIOMYOPATHY [None]
  - KNEE ARTHROPLASTY [None]
